FAERS Safety Report 8416502-7 (Version None)
Quarter: 2012Q2

REPORT INFORMATION
  Report Type: 
  Country: None (occurrence: None)
  Receive Date: 20120606
  Receipt Date: 20120531
  Transmission Date: 20120825
  Serious: Yes (Hospitalization)
  Sender: FDA-Public Use
  Company Number: US-GLAXOSMITHKLINE-A0816637A

PATIENT
  Sex: Male

DRUGS (9)
  1. ZOCOR [Concomitant]
  2. NIASPAN [Concomitant]
  3. DIOVAN [Concomitant]
  4. PROAIR HFA [Concomitant]
  5. AVANDIA [Suspect]
     Indication: TYPE 2 DIABETES MELLITUS
     Dosage: 8MG PER DAY
     Route: 048
     Dates: start: 20020101
  6. LABETALOL HCL [Concomitant]
  7. SPIRIVA [Concomitant]
  8. NORVASC [Concomitant]
  9. CLONIDINE [Concomitant]

REACTIONS (3)
  - MYOCARDIAL INFARCTION [None]
  - CARDIAC FAILURE [None]
  - CORONARY ARTERY DISEASE [None]
